FAERS Safety Report 6111785-0 (Version None)
Quarter: 2009Q1

REPORT INFORMATION
  Report Type: 
  Country: None (occurrence: None)
  Receive Date: 20090311
  Receipt Date: 20090303
  Transmission Date: 20090719
  Serious: Yes (Other)
  Sender: FDA-Public Use
  Company Number: TH-ABBOTT-09P-155-0561393-00

PATIENT
  Sex: Male
  Weight: 59 kg

DRUGS (4)
  1. SEVOFLURANE [Suspect]
     Indication: DRUG USE FOR UNKNOWN INDICATION
     Dosage: RANGE: 5-8%- 70 SECONDS
     Route: 055
     Dates: start: 20090303, end: 20090303
  2. N2O:02 [Concomitant]
     Indication: DRUG USE FOR UNKNOWN INDICATION
     Dates: start: 20090303, end: 20090303
  3. TRACRIUM [Concomitant]
     Indication: DRUG USE FOR UNKNOWN INDICATION
     Route: 042
     Dates: start: 20090303, end: 20090303
  4. MORPHINE [Concomitant]
     Indication: DRUG USE FOR UNKNOWN INDICATION
     Route: 013
     Dates: start: 20090303, end: 20090303

REACTIONS (2)
  - DYSKINESIA [None]
  - HYPOTENSION [None]
